FAERS Safety Report 13006441 (Version 1)
Quarter: 2016Q4

REPORT INFORMATION
  Report Type: Spontaneous
  Country: US (occurrence: US)
  Receive Date: 20161206
  Receipt Date: 20161206
  Transmission Date: 20170207
  Serious: Yes (Disabling, Other)
  Sender: FDA-Public Use
  Company Number: None

PATIENT
  Age: 53 Year
  Sex: Female
  Weight: 125.1 kg

DRUGS (5)
  1. FLONAS [Concomitant]
  2. AMOLODIPINE BESYLATE [Concomitant]
  3. SINGULAIR [Concomitant]
     Active Substance: MONTELUKAST SODIUM
  4. AZELASTINE HCI NASAL SOLUTION SUN PHARMACEUTICAL INDUSTRIES [Suspect]
     Active Substance: AZELASTINE HYDROCHLORIDE
     Indication: MULTIPLE ALLERGIES
     Dosage: ?          QUANTITY:30 SPRAY(S);?
     Route: 055
     Dates: start: 20161026, end: 20161206
  5. ALLEGRA [Concomitant]
     Active Substance: FEXOFENADINE HYDROCHLORIDE

REACTIONS (3)
  - Menorrhagia [None]
  - Rectal haemorrhage [None]
  - Anal haemorrhage [None]

NARRATIVE: CASE EVENT DATE: 20161201
